FAERS Safety Report 5328603-0 (Version None)
Quarter: 2007Q2

REPORT INFORMATION
  Report Type: 
  Country: None (occurrence: None)
  Receive Date: 20070518
  Receipt Date: 20070509
  Transmission Date: 20071010
  Serious: Yes (Other)
  Sender: FDA-Public Use
  Company Number: JP-JNJFOC-20070503193

PATIENT
  Sex: Female
  Weight: 54 kg

DRUGS (20)
  1. ITRACONAZOLE [Suspect]
     Indication: DRUG USE FOR UNKNOWN INDICATION
     Route: 065
  2. VELCADE [Suspect]
     Route: 065
  3. VELCADE [Suspect]
     Route: 065
  4. VELCADE [Suspect]
     Route: 065
  5. VELCADE [Suspect]
     Route: 065
  6. VELCADE [Suspect]
     Route: 065
  7. VELCADE [Suspect]
     Route: 065
  8. VELCADE [Suspect]
     Route: 065
  9. VELCADE [Suspect]
     Route: 065
  10. VELCADE [Suspect]
     Route: 065
  11. VELCADE [Suspect]
     Indication: MULTIPLE MYELOMA
     Route: 065
  12. DEXAMETHASONE 0.5MG TAB [Concomitant]
     Route: 048
  13. BENET [Concomitant]
     Indication: OSTEOPOROSIS
     Route: 048
  14. ONEALFA [Concomitant]
     Indication: OSTEOPOROSIS
     Route: 048
  15. MYSLEE [Concomitant]
     Indication: INSOMNIA
     Route: 048
  16. BAKTAR [Concomitant]
     Indication: PNEUMONIA
     Route: 048
  17. ALLOPURINOL [Concomitant]
     Indication: HYPERURICAEMIA
     Route: 048
  18. MAGLAX [Concomitant]
     Indication: CONSTIPATION
     Route: 048
  19. OMEPRAL [Concomitant]
     Indication: ABDOMINAL PAIN UPPER
     Route: 048
  20. NAUZELIN [Concomitant]
     Indication: NAUSEA
     Route: 048

REACTIONS (5)
  - ABDOMINAL PAIN UPPER [None]
  - BRONCHOPNEUMONIA [None]
  - NAUSEA [None]
  - NEUROPATHY PERIPHERAL [None]
  - THROMBOCYTOPENIA [None]
